FAERS Safety Report 13170974 (Version 1)
Quarter: 2017Q1

REPORT INFORMATION
  Report Type: Spontaneous
  Country: US (occurrence: US)
  Receive Date: 20170201
  Receipt Date: 20170201
  Transmission Date: 20170428
  Serious: Yes (Other)
  Sender: FDA-Public Use
  Company Number: US-ROCHE-1885509

PATIENT
  Sex: Female

DRUGS (2)
  1. TYKERB [Concomitant]
     Active Substance: LAPATINIB DITOSYLATE
     Indication: HER-2 POSITIVE BREAST CANCER
     Dosage: NO
     Route: 065
  2. HERCEPTIN [Suspect]
     Active Substance: TRASTUZUMAB
     Indication: HER-2 POSITIVE BREAST CANCER
     Route: 065
     Dates: start: 2008

REACTIONS (1)
  - Demyelination [Not Recovered/Not Resolved]

NARRATIVE: CASE EVENT DATE: 2017
